FAERS Safety Report 15267100 (Version 1)
Quarter: 2018Q3

REPORT INFORMATION
  Report Type: Spontaneous
  Country: US (occurrence: US)
  Receive Date: 20180810
  Receipt Date: 20180810
  Transmission Date: 20181010
  Serious: No
  Sender: FDA-Public Use
  Company Number: US-BIOGEN-2018BI00618342

PATIENT
  Sex: Male

DRUGS (1)
  1. TECFIDERA [Suspect]
     Active Substance: DIMETHYL FUMARATE
     Indication: MULTIPLE SCLEROSIS
     Dosage: MAINTENANCE DOSE
     Route: 048

REACTIONS (7)
  - Micturition disorder [Unknown]
  - Functional gastrointestinal disorder [Unknown]
  - Memory impairment [Unknown]
  - Nuclear magnetic resonance imaging abnormal [Unknown]
  - Neuralgia [Unknown]
  - Paraesthesia [Unknown]
  - Cognitive disorder [Unknown]
